FAERS Safety Report 7678508-5 (Version None)
Quarter: 2011Q3

REPORT INFORMATION
  Report Type: 
  Country: None (occurrence: None)
  Receive Date: 20110811
  Receipt Date: 20110804
  Transmission Date: 20111222
  Serious: Yes (Hospitalization)
  Sender: FDA-Public Use
  Company Number: US-BRISTOL-MYERS SQUIBB COMPANY-15948144

PATIENT

DRUGS (1)
  1. ONGLYZA [Suspect]

REACTIONS (3)
  - RENAL FAILURE [None]
  - PANCREATITIS [None]
  - CARDIAC DISORDER [None]
